FAERS Safety Report 8111256-6 (Version None)
Quarter: 2012Q1

REPORT INFORMATION
  Report Type: 
  Country: None (occurrence: None)
  Receive Date: 20120203
  Receipt Date: 20110718
  Transmission Date: 20120608
  Serious: No
  Sender: FDA-Public Use
  Company Number: US-GLAXOSMITHKLINE-A0937089A

PATIENT
  Age: 30 Year
  Sex: Male

DRUGS (2)
  1. LAMICTAL [Suspect]
     Indication: BIPOLAR DISORDER
     Dosage: 100MG PER DAY
     Route: 048
     Dates: start: 20110615
  2. BUPROPION HYDROCHLORIDE [Concomitant]

REACTIONS (5)
  - PRURITUS [None]
  - ENERGY INCREASED [None]
  - LOGORRHOEA [None]
  - RASH [None]
  - ILL-DEFINED DISORDER [None]
